FAERS Safety Report 13802133 (Version 1)
Quarter: 2017Q3

REPORT INFORMATION
  Report Type: Spontaneous
  Country: FR (occurrence: FR)
  Receive Date: 20170727
  Receipt Date: 20170727
  Transmission Date: 20171127
  Serious: Yes (Life-Threatening, Hospitalization, Other)
  Sender: FDA-Public Use
  Company Number: FR-BRISTOL-MYERS SQUIBB COMPANY-BMS-2017-063778

PATIENT
  Sex: Female

DRUGS (11)
  1. CORDARONE [Concomitant]
     Active Substance: AMIODARONE HYDROCHLORIDE
     Indication: ATRIAL FIBRILLATION
     Dosage: 200 MG, QD FOR 5 DAYS OUT OF 7 DAYS
     Route: 048
     Dates: start: 20170622
  2. STAGID [Concomitant]
     Active Substance: METFORMIN PAMOATE
     Indication: TYPE 2 DIABETES MELLITUS
     Dosage: 700 MG, BID
     Route: 048
     Dates: start: 20170622
  3. EFFEXOR [Concomitant]
     Active Substance: VENLAFAXINE HYDROCHLORIDE
     Indication: DEPRESSION
     Dosage: 75 MG, QD
     Route: 048
     Dates: start: 20170622
  4. LEVEMIR [Concomitant]
     Active Substance: INSULIN DETEMIR
     Indication: DIABETES MELLITUS
     Dosage: 14 IU, QD (IN THE EVENING)
     Route: 050
     Dates: start: 20170622
  5. LASILIX FAIBLE [Concomitant]
     Active Substance: FUROSEMIDE
     Indication: HYPERTENSION
     Dosage: 20 MG, BID
     Route: 048
     Dates: start: 20170622
  6. LOVENOX [Suspect]
     Active Substance: ENOXAPARIN SODIUM
     Indication: EYE OPERATION
     Dosage: 0.8 ML, BID
     Route: 050
     Dates: start: 20170622, end: 20170705
  7. HUMALOG [Concomitant]
     Active Substance: INSULIN LISPRO
     Indication: DIABETES MELLITUS
     Dosage: 1 DF (22-24IU), TID
     Route: 050
     Dates: start: 20170622
  8. CRESTOR [Concomitant]
     Active Substance: ROSUVASTATIN CALCIUM
     Indication: DYSLIPIDAEMIA
     Dosage: 10 MG, QD
     Route: 048
     Dates: start: 20170622
  9. COUMADINE [Suspect]
     Active Substance: WARFARIN SODIUM
     Indication: THROMBOSIS PROPHYLAXIS
     Dosage: UNK, QD
     Route: 048
     Dates: end: 20170705
  10. CARDENSIEL [Concomitant]
     Active Substance: BISOPROLOL FUMARATE
     Indication: HYPERTENSION
     Dosage: 2.5 MG, BID
     Route: 048
     Dates: start: 20170622
  11. LEVOTHYROX [Concomitant]
     Active Substance: LEVOTHYROXINE
     Indication: HYPOTHYROIDISM
     Dosage: 75 ?G, QD
     Route: 048
     Dates: start: 20170622

REACTIONS (6)
  - Muscle haemorrhage [Unknown]
  - Renal failure [Unknown]
  - Shock haemorrhagic [Recovered/Resolved]
  - Packed red blood cell transfusion [Unknown]
  - Overdose [Unknown]
  - Therapeutic embolisation [Unknown]
